FAERS Safety Report 13616118 (Version 2)
Quarter: 2017Q2

REPORT INFORMATION
  Report Type: Spontaneous
  Country: US (occurrence: US)
  Receive Date: 20170606
  Receipt Date: 20170608
  Transmission Date: 20170830
  Serious: No
  Sender: FDA-Public Use
  Company Number: US-PFIZER INC-2017244692

PATIENT
  Age: 33 Year
  Sex: Female

DRUGS (1)
  1. XELJANZ [Suspect]
     Active Substance: TOFACITINIB CITRATE
     Indication: RHEUMATOID ARTHRITIS
     Dosage: 5 MG, UNK

REACTIONS (16)
  - Arthralgia [Unknown]
  - Dermatitis [Unknown]
  - Hyperhidrosis [Unknown]
  - Influenza like illness [Unknown]
  - Alanine aminotransferase increased [Unknown]
  - Joint swelling [Unknown]
  - Upper respiratory tract infection [Recovered/Resolved]
  - Synovial disorder [Unknown]
  - Diastolic hypertension [Unknown]
  - Productive cough [Recovered/Resolved]
  - Sinus tachycardia [Unknown]
  - Blood pressure increased [Unknown]
  - Chills [Unknown]
  - Stress fracture [Unknown]
  - Joint range of motion decreased [Unknown]
  - Musculoskeletal pain [Unknown]
